FAERS Safety Report 26113829 (Version 1)
Quarter: 2025Q4

REPORT INFORMATION
  Report Type: Spontaneous
  Country: CA (occurrence: CA)
  Receive Date: 20251202
  Receipt Date: 20251202
  Transmission Date: 20260117
  Serious: Yes (Death, Hospitalization)
  Sender: ALEXION PHARMACEUTICALS
  Company Number: CA-AstraZeneca-2021A189025

PATIENT
  Age: 73 Year
  Sex: Female

DRUGS (3)
  1. FULVESTRANT [Suspect]
     Active Substance: FULVESTRANT
     Indication: Breast cancer
     Dosage: UNKNOWN DOSE AND FREQUENCY
  2. FULVESTRANT [Suspect]
     Active Substance: FULVESTRANT
  3. ALPELISIB [Suspect]
     Active Substance: ALPELISIB
     Indication: Breast cancer metastatic
     Dosage: 300 MILLIGRAM, UNK, FREQUENCY: UNK

REACTIONS (4)
  - Cardiac arrest [Fatal]
  - Diabetic ketoacidosis [Fatal]
  - Feeling abnormal [Fatal]
  - Myocardial infarction [Fatal]
